FAERS Safety Report 6343633-8 (Version None)
Quarter: 2009Q3

REPORT INFORMATION
  Report Type: 
  Country: None (occurrence: None)
  Receive Date: 20090903
  Receipt Date: 20090817
  Transmission Date: 20100115
  Serious: Yes (Death, Hospitalization)
  Sender: FDA-Public Use
  Company Number: 2009AL002412

PATIENT
  Age: 73 Year
  Sex: Female

DRUGS (25)
  1. DIGOXIN [Suspect]
     Indication: CARDIAC FAILURE CONGESTIVE
     Dosage: 0.125MG, PO
     Route: 048
     Dates: start: 20050101, end: 20080501
  2. CYPROHEPTADINE [Concomitant]
  3. METOPROLOL TARTRATE [Concomitant]
  4. LEVOTHYROXINE SODIUM [Concomitant]
  5. LEVAQUIN [Concomitant]
  6. EXELON [Concomitant]
  7. KLOR-CON [Concomitant]
  8. FLORINEF [Concomitant]
  9. LORAZEPAM [Concomitant]
  10. PLAVIX [Concomitant]
  11. CALCITRIOL [Concomitant]
  12. MEGACE [Concomitant]
  13. DYAZIDE [Concomitant]
  14. LOTREL [Concomitant]
  15. PAXIL [Concomitant]
  16. URSODIOL [Concomitant]
  17. CHOLESTYRAMINE [Concomitant]
  18. WELLBUTRIN [Concomitant]
  19. ADVENT [Concomitant]
  20. ASPIRIN [Concomitant]
  21. LEVBID [Concomitant]
  22. SYTHROID [Concomitant]
  23. RISPERDAL [Concomitant]
  24. PROZAC [Concomitant]
  25. MAXZIDE [Concomitant]

REACTIONS (16)
  - ASTHENIA [None]
  - AZOTAEMIA [None]
  - CARDIAC FAILURE CONGESTIVE [None]
  - CARDIOVASCULAR DISORDER [None]
  - DEHYDRATION [None]
  - DIARRHOEA [None]
  - DIZZINESS [None]
  - HYPERTENSION [None]
  - HYPOVOLAEMIA [None]
  - PERITONEAL ADHESIONS [None]
  - POST PROCEDURAL COMPLICATION [None]
  - RENAL FAILURE [None]
  - RENAL TUBULAR ACIDOSIS [None]
  - SCLERODERMA [None]
  - UNEVALUABLE EVENT [None]
  - VOMITING [None]
